FAERS Safety Report 6147029-3 (Version None)
Quarter: 2009Q2

REPORT INFORMATION
  Report Type: 
  Country: None (occurrence: None)
  Receive Date: 20090402
  Receipt Date: 20090319
  Transmission Date: 20091009
  Serious: Yes (Other)
  Sender: FDA-Public Use
  Company Number: ENTC2009-0092

PATIENT
  Sex: Male

DRUGS (1)
  1. STALEVO 100 [Suspect]
     Dosage: 1DF, QD 100/25/200 MG ORAL
     Route: 048

REACTIONS (5)
  - ASTHENIA [None]
  - CHROMATURIA [None]
  - NAUSEA [None]
  - NEURALGIA [None]
  - WEIGHT DECREASED [None]
